FAERS Safety Report 23324816 (Version 1)
Quarter: 2023Q4

REPORT INFORMATION
  Report Type: Spontaneous
  Country: CA (occurrence: CA)
  Receive Date: 20231221
  Receipt Date: 20231221
  Transmission Date: 20240109
  Serious: Yes (Hospitalization, Other)
  Sender: FDA-Public Use
  Company Number: CA-GRANULES-CA-2023GRALIT00365

PATIENT
  Age: 46 Year
  Sex: Female

DRUGS (15)
  1. GABAPENTIN [Suspect]
     Active Substance: GABAPENTIN
     Indication: Multiple sclerosis
     Route: 065
  2. GABAPENTIN [Suspect]
     Active Substance: GABAPENTIN
     Route: 065
  3. GABAPENTIN [Suspect]
     Active Substance: GABAPENTIN
     Dosage: FURTHER DECREASE IN GABAPENTIN
     Route: 065
  4. BACLOFEN [Suspect]
     Active Substance: BACLOFEN
     Indication: Multiple sclerosis
     Route: 065
  5. BACLOFEN [Suspect]
     Active Substance: BACLOFEN
     Route: 065
  6. BACLOFEN [Suspect]
     Active Substance: BACLOFEN
     Dosage: BACLOFEN WAS DECREASED TO HALF DOSE
     Route: 065
  7. TIAGABINE [Suspect]
     Active Substance: TIAGABINE
     Indication: Multiple sclerosis
     Route: 065
  8. TIAGABINE [Suspect]
     Active Substance: TIAGABINE
     Route: 065
  9. TIAGABINE [Suspect]
     Active Substance: TIAGABINE
     Dosage: TIAGABINE TAPERED OFF
     Route: 065
  10. PROPRANOLOL [Concomitant]
     Active Substance: PROPRANOLOL HYDROCHLORIDE
     Indication: Multiple sclerosis
     Route: 065
  11. PROPRANOLOL [Concomitant]
     Active Substance: PROPRANOLOL HYDROCHLORIDE
     Route: 065
  12. DALFAMPRIDINE [Concomitant]
     Active Substance: DALFAMPRIDINE
     Indication: Multiple sclerosis
     Route: 065
  13. DALFAMPRIDINE [Concomitant]
     Active Substance: DALFAMPRIDINE
     Route: 065
  14. TERIFLUNOMIDE [Concomitant]
     Active Substance: TERIFLUNOMIDE
     Indication: Multiple sclerosis
     Route: 065
  15. INTERFERON BETA [Concomitant]
     Active Substance: INTERFERON BETA
     Indication: Multiple sclerosis
     Route: 065

REACTIONS (3)
  - Encephalopathy [Recovering/Resolving]
  - Myoclonus [Recovering/Resolving]
  - Product use in unapproved indication [Unknown]
